FAERS Safety Report 5252818-3 (Version None)
Quarter: 2007Q1

REPORT INFORMATION
  Report Type: 
  Country: None (occurrence: None)
  Receive Date: 20070301
  Receipt Date: 20061208
  Transmission Date: 20070707
  Serious: No
  Sender: FDA-Public Use
  Company Number: US-GLAXOSMITHKLINE-A0630943A

PATIENT
  Age: 59 Year
  Sex: Male

DRUGS (3)
  1. LAMICTAL [Suspect]
     Indication: BIPOLAR DISORDER
     Dosage: 200MG PER DAY
     Route: 048
     Dates: start: 20060801
  2. PROZAC [Concomitant]
  3. STRONTIUM ACETATE [Concomitant]

REACTIONS (5)
  - PHARYNGOLARYNGEAL PAIN [None]
  - PRURITUS [None]
  - RASH [None]
  - SINUS OPERATION [None]
  - SKIN CHAPPED [None]
